FAERS Safety Report 4424317-X (Version None)
Quarter: 2004Q3

REPORT INFORMATION
  Report Type: 
  Country: None (occurrence: None)
  Receive Date: 20040809
  Receipt Date: 20040722
  Transmission Date: 20050211
  Serious: No
  Sender: FDA-Public Use
  Company Number: ZONI002003

PATIENT
  Age: 20 Month
  Sex: Female

DRUGS (4)
  1. EXCEGRAN (ZONISAMIDE) [Suspect]
     Indication: INFANTILE SPASMS
     Dosage: ORAL
     Route: 048
  2. VALPROATE SODIUM [Concomitant]
  3. NITRAZEPAM [Concomitant]
  4. ADRENOCORTICOTROPHIC (ADRENOCORTICOTROPHIC) [Concomitant]

REACTIONS (5)
  - CALCULUS URINARY [None]
  - HAEMATURIA [None]
  - HYPERCALCIURIA [None]
  - POSTRENAL FAILURE [None]
  - PYELECTASIA [None]
